FAERS Safety Report 12507600 (Version 1)
Quarter: 2016Q2

REPORT INFORMATION
  Report Type: Report from Study
  Country: US (occurrence: US)
  Receive Date: 20160629
  Receipt Date: 20160629
  Transmission Date: 20160815
  Serious: Yes (Congenital Anomaly)
  Sender: FDA-Public Use
  Company Number: PHEH2016US015567

PATIENT

DRUGS (1)
  1. COSENTYX [Suspect]
     Active Substance: SECUKINUMAB
     Indication: PSORIASIS
     Dosage: UNK
     Route: 064
     Dates: start: 20150515

REACTIONS (4)
  - Foetal exposure during pregnancy [Unknown]
  - Talipes [Unknown]
  - Postmature baby [Unknown]
  - Limb malformation [Unknown]
